FAERS Safety Report 18131168 (Version 1)
Quarter: 2020Q3

REPORT INFORMATION
  Report Type: Spontaneous
  Country: US (occurrence: US)
  Receive Date: 20200810
  Receipt Date: 20200810
  Transmission Date: 20201103
  Serious: Yes (Death, Hospitalization, Other)
  Sender: FDA-Public Use
  Company Number: US-PURDUE-USA-2020-0160565

PATIENT
  Age: 51 Year
  Sex: Female

DRUGS (6)
  1. OXYCONTIN [Suspect]
     Active Substance: OXYCODONE HYDROCHLORIDE
     Indication: PAIN
     Dosage: UNK
     Route: 048
     Dates: start: 200303
  2. DILAUDID [Suspect]
     Active Substance: HYDROMORPHONE HYDROCHLORIDE
     Indication: PAIN
     Dosage: UNK
     Route: 048
     Dates: start: 200211
  3. TRAMADOL. [Suspect]
     Active Substance: TRAMADOL
     Indication: PAIN
     Dosage: UNK
     Route: 048
  4. REQUIP [Concomitant]
     Active Substance: ROPINIROLE HYDROCHLORIDE
     Indication: RESTLESS LEGS SYNDROME
     Dosage: UNK
     Route: 048
  5. MS CONTIN [Suspect]
     Active Substance: MORPHINE SULFATE
     Indication: PAIN
     Dosage: UNK
     Route: 048
  6. AMBIEN [Concomitant]
     Active Substance: ZOLPIDEM TARTRATE
     Indication: INSOMNIA
     Dosage: UNK, PRN
     Route: 048

REACTIONS (21)
  - Irritability [Unknown]
  - Aggression [Unknown]
  - Inappropriate schedule of product administration [Unknown]
  - Restless legs syndrome [Unknown]
  - Insomnia [Unknown]
  - Somnolence [Unknown]
  - Eyelid disorder [Unknown]
  - Paranoia [Unknown]
  - Physical assault [Unknown]
  - Intestinal prolapse [Unknown]
  - Drug dependence [Unknown]
  - Cerebrovascular accident [Fatal]
  - Large intestinal ulcer [Unknown]
  - Mental disorder [Unknown]
  - Intestinal cyst [Unknown]
  - Overdose [Unknown]
  - Colonoscopy [Unknown]
  - Withdrawal syndrome [Unknown]
  - Suicide attempt [Unknown]
  - Schizoid personality disorder [Unknown]
  - Personality change [Unknown]

NARRATIVE: CASE EVENT DATE: 200212
